FAERS Safety Report 6541723-8 (Version None)
Quarter: 2010Q1

REPORT INFORMATION
  Report Type: 
  Country: None (occurrence: None)
  Receive Date: 20100119
  Receipt Date: 20100112
  Transmission Date: 20100710
  Serious: Yes (Hospitalization)
  Sender: FDA-Public Use
  Company Number: JP-BAYER-200915035BYL

PATIENT
  Age: 62 Year
  Sex: Male
  Weight: 57 kg

DRUGS (9)
  1. NEXAVAR [Suspect]
     Indication: HEPATIC NEOPLASM MALIGNANT
     Dosage: TOTAL DAILY DOSE: 800 MG  UNIT DOSE: 200 MG
     Route: 048
     Dates: start: 20091120, end: 20091127
  2. RABEPRAZOLE SODIUM [Concomitant]
     Dosage: UNIT DOSE: 10 MG
     Route: 048
  3. URSO 250 [Concomitant]
     Dosage: UNIT DOSE: 100 MG
     Route: 048
  4. GLYCYRON [Concomitant]
     Dosage: UNIT DOSE: 25 MG
     Route: 048
  5. LIVACT [Concomitant]
     Dosage: UNIT DOSE: 4.15 G
     Route: 048
  6. LASIX [Concomitant]
     Dosage: UNIT DOSE: 40 MG
     Route: 048
  7. ALDACTONE [Concomitant]
     Dosage: UNIT DOSE: 25 MG
     Route: 048
  8. LENDORMIN D [Concomitant]
     Dosage: UNIT DOSE: 0.25 MG
     Route: 048
  9. BENZALIN [Concomitant]
     Dosage: UNIT DOSE: 5 MG
     Route: 048

REACTIONS (1)
  - HEPATIC FUNCTION ABNORMAL [None]
